FAERS Safety Report 4279685-9 (Version None)
Quarter: 2004Q1

REPORT INFORMATION
  Report Type: 
  Country: None (occurrence: None)
  Receive Date: 20040122
  Receipt Date: 20040115
  Transmission Date: 20041129
  Serious: Yes (Hospitalization)
  Sender: FDA-Public Use
  Company Number: 2003164592JP

PATIENT
  Age: 60 Year
  Sex: Male

DRUGS (10)
  1. AZULFIDINE [Suspect]
     Indication: RHEUMATOID ARTHRITIS
     Dosage: 1 G, ORAL
     Route: 048
     Dates: start: 20021028, end: 20021114
  2. SHIOSOL(SODIUM AUROTHIOMALATE) [Suspect]
     Indication: RHEUMATOID ARTHRITIS
     Dosage: 1 DF/DAY, INTRAMUSCULAR
     Route: 030
     Dates: start: 20020610, end: 20021115
  3. FAMOTIDINE [Concomitant]
  4. LOSARTAN POTASSIUM (LOSARTAN POTASSIUM) [Concomitant]
  5. TEPRENONE (TEPRENONE) [Concomitant]
  6. VOGLIBOSE (VOGLIBOSE) [Concomitant]
  7. PRAVASTATN SODIUM (PRAVASTATIN SODIUM) [Concomitant]
  8. KETOTIFEN FUMARATE [Concomitant]
  9. DICLOFENAC SODIUM [Concomitant]
  10. PREDNISOLONE [Concomitant]

REACTIONS (16)
  - ANAEMIA [None]
  - APPETITE DISORDER [None]
  - BLOOD CREATININE INCREASED [None]
  - BLOOD UREA INCREASED [None]
  - CHILLS [None]
  - CONSTIPATION [None]
  - GAIT DISTURBANCE [None]
  - HAEMOLYTIC ANAEMIA [None]
  - HEPATITIS [None]
  - IMPETIGO [None]
  - LYMPHOCYTE STIMULATION TEST POSITIVE [None]
  - MARROW HYPERPLASIA [None]
  - PRURITUS [None]
  - RENAL DISORDER [None]
  - URINARY RETENTION [None]
  - WHITE BLOOD CELL COUNT INCREASED [None]
